FAERS Safety Report 7069881-X (Version None)
Quarter: 2010Q4

REPORT INFORMATION
  Report Type: 
  Country: None (occurrence: None)
  Receive Date: 20101028
  Receipt Date: 20100715
  Transmission Date: 20110411
  Serious: Yes (Other)
  Sender: FDA-Public Use
  Company Number: US-WYE-H16292610

PATIENT
  Sex: Female
  Weight: 87.62 kg

DRUGS (6)
  1. PROTONIX [Suspect]
     Indication: GASTRITIS
     Dosage: STARTED PROTOINX ^A LONG TIME AGO^, DOSE UNKNOWN, WAS SWITCHED TO PANTOPRAZOLE 40 MG BID IN 2010
  2. XANAX [Concomitant]
     Dosage: UNKNOWN
  3. XALATAN [Concomitant]
     Dosage: UNKNOWN
  4. SKELAXIN [Concomitant]
     Dosage: UNKNOWN
  5. PERCOCET [Concomitant]
     Indication: PAIN
     Dosage: UNKNOWN
  6. LIPITOR [Concomitant]
     Indication: HYPERCHOLESTEROLAEMIA
     Dosage: UNKNOWN

REACTIONS (2)
  - BLOOD TRIGLYCERIDES INCREASED [None]
  - DRUG INEFFECTIVE [None]
